FAERS Safety Report 9895490 (Version 1)
Quarter: 2014Q1

REPORT INFORMATION
  Report Type: Spontaneous
  Country: US (occurrence: US)
  Receive Date: 20140213
  Receipt Date: 20140213
  Transmission Date: 20141002
  Serious: No
  Sender: FDA-Public Use
  Company Number: US-BRISTOL-MYERS SQUIBB COMPANY-19410612

PATIENT
  Age: 63 Year
  Sex: Female
  Weight: 69.39 kg

DRUGS (9)
  1. ABATACEPT SUBQ INJECTION 125MG/ML [Suspect]
     Dosage: 1DF=125 MG/1ML:4 PACKS
     Route: 058
  2. GABAPENTIN [Concomitant]
     Dosage: CAPS
  3. LISINOPRIL [Concomitant]
     Dosage: TAB
  4. OXYCODONE [Concomitant]
     Dosage: CAPS
  5. RANITIDINE [Concomitant]
     Dosage: CAP
  6. LEFLUNOMIDE [Concomitant]
     Dosage: TAB
  7. PREDNISONE [Concomitant]
     Dosage: TAB
  8. HYDROCHLOROTHIAZIDE [Concomitant]
     Dosage: TAB
  9. OMEPRAZOLE [Concomitant]
     Dosage: TAB

REACTIONS (3)
  - Nausea [Recovered/Resolved]
  - Vomiting [Recovered/Resolved]
  - Diarrhoea [Recovering/Resolving]
